FAERS Safety Report 5043594-8 (Version None)
Quarter: 2006Q2

REPORT INFORMATION
  Report Type: 
  Country: None (occurrence: None)
  Receive Date: 20060629
  Receipt Date: 20060619
  Transmission Date: 20061013
  Serious: Yes (Hospitalization, Other)
  Sender: FDA-Public Use
  Company Number: 2006078249

PATIENT
  Age: 56 Year
  Sex: Female
  Weight: 84.369 kg

DRUGS (10)
  1. LIPITOR [Suspect]
     Indication: BLOOD CHOLESTEROL INCREASED
     Dosage: 40 MG (40 MG, 1 IN 1 D), ORAL
     Route: 048
     Dates: start: 20040201
  2. AVANDIA [Concomitant]
  3. GLUCOPHAGE [Concomitant]
  4. METOPROLOL TARTRATE [Concomitant]
  5. NORVASC [Concomitant]
  6. POTASSIUM [Concomitant]
  7. LISINOPRIL [Concomitant]
  8. METFORMIN [Concomitant]
  9. CONCERTA [Concomitant]
  10. METHADONE HCL [Concomitant]

REACTIONS (1)
  - ABASIA [None]
